FAERS Safety Report 20234548 (Version 7)
Quarter: 2023Q1

REPORT INFORMATION
  Report Type: Report from Study
  Country: CA (occurrence: None)
  Receive Date: 20211227
  Receipt Date: 20230105
  Transmission Date: 20230418
  Serious: Yes (Hospitalization)
  Sender: FDA-Public Use
  Company Number: CA-ROCHE-2984038

PATIENT
  Age: 76 Year
  Sex: Female
  Weight: 68.5 kg

DRUGS (26)
  1. COBIMETINIB [Suspect]
     Active Substance: COBIMETINIB
     Indication: Metastatic malignant melanoma
     Dosage: DOSE LAST STUDY DRUG ADMIN PRIOR AE IS 20 MG; START DATE OF MOST RECENT DOSE OF STUDY DRUG?PRIOR TO
     Route: 048
     Dates: start: 20211202
  2. SODIUM PHOSPHATE [Concomitant]
     Active Substance: SODIUM PHOSPHATE
     Indication: Blood phosphorus decreased
     Route: 042
     Dates: start: 20211221, end: 20211221
  3. SALINE [Concomitant]
     Active Substance: SODIUM CHLORIDE
     Indication: Dehydration
     Dosage: DRUG DOSE FIRST ADMINISTERED IS 1000 OTHER
     Route: 042
     Dates: start: 20211202, end: 20211202
  4. BENADRYL [Concomitant]
     Active Substance: DIPHENHYDRAMINE HYDROCHLORIDE
     Indication: Pruritus
     Route: 048
     Dates: start: 20211216
  5. SODIUM CHLORIDE [Concomitant]
     Active Substance: SODIUM CHLORIDE
     Indication: Hypotension
     Route: 042
     Dates: start: 20211216
  6. BETADERM [Concomitant]
     Active Substance: BETAMETHASONE VALERATE
     Indication: Fungal infection
     Route: 061
     Dates: start: 2021
  7. CALCIUM SUPPLEMENT WITH VITAMIN D [Concomitant]
     Dosage: GIVEN FOR PROPHYLAXIS IS YES ;ONGOING: NO
     Route: 048
     Dates: start: 2001, end: 20211202
  8. LEVOTHYROXINE [Concomitant]
     Active Substance: LEVOTHYROXINE
     Indication: Hypothyroidism
     Route: 048
     Dates: start: 200107, end: 20211216
  9. LEVOTHYROXINE [Concomitant]
     Active Substance: LEVOTHYROXINE
     Route: 048
     Dates: start: 20211213, end: 20220121
  10. HYDROCHLOROTHIAZIDE [Concomitant]
     Active Substance: HYDROCHLOROTHIAZIDE
     Indication: Hypertension
     Dosage: YES
     Route: 048
     Dates: start: 2001, end: 20211216
  11. LASIX [Concomitant]
     Active Substance: FUROSEMIDE
     Dosage: GIVEN FOR PROPHYLAXIS IS YES ;ONGOING: YES
     Route: 048
     Dates: start: 2020, end: 20211216
  12. METFORMIN [Concomitant]
     Active Substance: METFORMIN HYDROCHLORIDE
     Indication: Type 2 diabetes mellitus
     Route: 048
     Dates: start: 2020, end: 20211129
  13. METFORMIN [Concomitant]
     Active Substance: METFORMIN HYDROCHLORIDE
     Indication: Rosacea
     Route: 048
     Dates: start: 20211130
  14. NYADERM [Concomitant]
     Indication: Fungal infection
     Route: 061
     Dates: start: 202107
  15. OZEMPIC [Concomitant]
     Active Substance: SEMAGLUTIDE
     Indication: Type 2 diabetes mellitus
     Route: 058
     Dates: start: 2021
  16. ROSUVASTATIN [Concomitant]
     Active Substance: ROSUVASTATIN
     Indication: Hyperlipidaemia
     Route: 048
     Dates: start: 2020, end: 20211125
  17. RABEPRAZOLE [Concomitant]
     Active Substance: RABEPRAZOLE
     Indication: Gastrooesophageal reflux disease
     Route: 048
     Dates: start: 1990, end: 20211124
  18. TRANDOLAPRIL [Concomitant]
     Active Substance: TRANDOLAPRIL
     Indication: Pain
     Route: 048
     Dates: start: 202107, end: 20211216
  19. TRANDOLAPRIL [Concomitant]
     Active Substance: TRANDOLAPRIL
     Route: 048
     Dates: start: 20201230
  20. PHOSPHATE NOVARTIS [Concomitant]
     Indication: Blood phosphorus decreased
     Route: 048
     Dates: start: 20211217, end: 20211229
  21. POLYETHYLENE GLYCOL 3350 [Concomitant]
     Active Substance: POLYETHYLENE GLYCOL 3350
     Indication: Constipation
     Route: 048
     Dates: start: 20211217
  22. SENNA [Concomitant]
     Active Substance: SENNA LEAF\SENNOSIDES\SENNOSIDES A AND B
     Indication: Constipation
     Route: 048
     Dates: start: 20211217
  23. CALCIUM CHLORIDE\POTASSIUM CHLORIDE\SODIUM LACTATE [Concomitant]
     Active Substance: CALCIUM CHLORIDE\POTASSIUM CHLORIDE\SODIUM LACTATE
     Indication: Hypotension
     Dosage: 500 UNKNOWN
     Route: 042
     Dates: start: 20211217, end: 20211217
  24. CLINDAMYCIN [Concomitant]
     Active Substance: CLINDAMYCIN
     Indication: Pruritus
     Route: 061
     Dates: start: 20211229
  25. PANTOPRAZOLE [Concomitant]
     Active Substance: PANTOPRAZOLE
     Route: 048
     Dates: start: 20211217
  26. ENOXAPARIN [Concomitant]
     Active Substance: ENOXAPARIN
     Indication: Prophylaxis
     Route: 058
     Dates: start: 20211217, end: 20211221

REACTIONS (1)
  - Rash maculo-papular [Recovered/Resolved]

NARRATIVE: CASE EVENT DATE: 20211216
